FAERS Safety Report 16022940 (Version 1)
Quarter: 2019Q1

REPORT INFORMATION
  Report Type: Spontaneous
  Country: US (occurrence: US)
  Receive Date: 20190301
  Receipt Date: 20190301
  Transmission Date: 20190418
  Serious: No
  Sender: FDA-Public Use
  Company Number: US-CELGENEUS-USA-20190208438

PATIENT
  Sex: Male

DRUGS (1)
  1. POMALYST [Suspect]
     Active Substance: POMALIDOMIDE
     Indication: PLASMA CELL MYELOMA
     Dosage: 4 MILLIGRAM (TO BE TAKEN ON AN EMPTY STOMACH)
     Route: 048
     Dates: start: 20180724

REACTIONS (2)
  - Flatulence [Recovered/Resolved]
  - Abdominal discomfort [Recovered/Resolved]
